FAERS Safety Report 21108975 (Version 1)
Quarter: 2022Q3

REPORT INFORMATION
  Report Type: Spontaneous
  Country: US (occurrence: US)
  Receive Date: 20220721
  Receipt Date: 20220721
  Transmission Date: 20221026
  Serious: No
  Sender: FDA-Public Use
  Company Number: None

PATIENT
  Age: 21 Day
  Sex: Female

DRUGS (5)
  1. ALBUTEROL SULFATE [Suspect]
     Active Substance: ALBUTEROL SULFATE
     Indication: Cough
     Dosage: UNK
     Route: 055
  2. BUDESONIDE [Suspect]
     Active Substance: BUDESONIDE
     Indication: Cough
     Route: 065
  3. DORNASE ALFA [Suspect]
     Active Substance: DORNASE ALFA
     Indication: Cough
     Route: 065
  4. LIDOCAINE [Suspect]
     Active Substance: LIDOCAINE
     Indication: Cough
     Route: 065
  5. RACEPINEPHRINE [Suspect]
     Active Substance: RACEPINEPHRINE
     Indication: Cough
     Route: 065

REACTIONS (1)
  - Drug ineffective [Not Recovered/Not Resolved]
